FAERS Safety Report 14735428 (Version 1)
Quarter: 2018Q2

REPORT INFORMATION
  Report Type: Spontaneous
  Country: US (occurrence: US)
  Receive Date: 20180403
  Receipt Date: 20180403
  Transmission Date: 20180711
  Serious: Yes (Other)
  Sender: FDA-Public Use
  Company Number: None

PATIENT
  Age: 48 Year
  Sex: Female
  Weight: 81 kg

DRUGS (4)
  1. XYZAL [Concomitant]
     Active Substance: LEVOCETIRIZINE DIHYDROCHLORIDE
  2. IBUPROFEN. [Concomitant]
     Active Substance: IBUPROFEN
  3. OXYMETALAZINE SPRAY [Suspect]
     Active Substance: OXYMETAZOLINE
     Indication: EAR DISCOMFORT
     Dosage: ?          QUANTITY:1 SPRAY(S);?
     Route: 055
     Dates: start: 20180403, end: 20180403
  4. DRAMAMINE [Concomitant]
     Active Substance: DIMENHYDRINATE

REACTIONS (3)
  - Burning sensation [None]
  - Sinus disorder [None]
  - Sinus pain [None]

NARRATIVE: CASE EVENT DATE: 20180403
